FAERS Safety Report 6936174-8 (Version None)
Quarter: 2010Q3

REPORT INFORMATION
  Report Type: 
  Country: None (occurrence: None)
  Receive Date: 20100823
  Receipt Date: 20100813
  Transmission Date: 20110219
  Serious: Yes (Hospitalization)
  Sender: FDA-Public Use
  Company Number: DE-PFIZER INC-2009188817

PATIENT
  Age: 53 Year
  Sex: Male
  Weight: 85 kg

DRUGS (8)
  1. SUNITINIB MALATE [Suspect]
     Indication: NON-SMALL CELL LUNG CANCER
     Dosage: 37.5 MG, 1X/DAY
     Route: 048
     Dates: start: 20081106
  2. ERLOTINIB HYDROCHLORIDE [Suspect]
     Indication: NON-SMALL CELL LUNG CANCER
     Dosage: 150 MG, 1X/DAY
     Route: 048
     Dates: start: 20081106
  3. LYRICA [Concomitant]
     Dosage: UNK
     Route: 048
     Dates: start: 20080706
  4. SPIRIVA [Concomitant]
     Dosage: UNK
     Route: 048
     Dates: start: 20081106
  5. ADVANTAN [Concomitant]
     Dosage: UNK
     Route: 003
     Dates: start: 20081120
  6. KELTICAN N [Concomitant]
     Dosage: UNK
     Route: 048
     Dates: start: 20081120
  7. DIPROGENTA [Concomitant]
     Dosage: UNK
     Route: 003
     Dates: start: 20081203
  8. LINOLA [Concomitant]
     Dosage: UNK
     Route: 003
     Dates: start: 20081217

REACTIONS (1)
  - PNEUMONIA [None]
